FAERS Safety Report 9149300 (Version 1)
Quarter: 2013Q1

REPORT INFORMATION
  Report Type: Spontaneous
  Country: GB (occurrence: GB)
  Receive Date: 20130308
  Receipt Date: 20130308
  Transmission Date: 20140127
  Serious: Yes (Life-Threatening, Hospitalization, Other)
  Sender: FDA-Public Use
  Company Number: GB-BRISTOL-MYERS SQUIBB COMPANY-17416462

PATIENT
  Age: 79 Year
  Sex: Male
  Weight: 60.5 kg

DRUGS (13)
  1. YERVOY [Suspect]
     Indication: METASTATIC MALIGNANT MELANOMA
     Route: 042
     Dates: start: 20121211, end: 20130102
  2. CO-CODAMOL [Concomitant]
     Dosage: 30/500
     Route: 048
  3. FOLIC ACID [Concomitant]
     Route: 048
  4. PERINDOPRIL [Concomitant]
     Indication: HYPERTENSION
     Route: 048
  5. METFORMIN HCL [Concomitant]
     Indication: DIABETES MELLITUS
     Route: 048
  6. PIOGLITAZONE HCL [Concomitant]
     Indication: DIABETES MELLITUS
     Route: 048
  7. FERROUS SULFATE [Concomitant]
     Route: 048
  8. OMEPRAZOLE [Concomitant]
     Route: 048
  9. HYDROCORTISONE [Concomitant]
     Dosage: STAT DOSE.
     Route: 042
     Dates: start: 20130123
  10. MEROPENEM [Concomitant]
     Route: 042
     Dates: start: 20130120, end: 20130123
  11. AUGMENTIN [Concomitant]
     Dosage: ONGOING.
     Route: 042
     Dates: start: 20130123
  12. METHYLPREDNISOLONE [Concomitant]
     Route: 042
     Dates: start: 20130123
  13. GLICLAZIDE [Concomitant]
     Route: 048

REACTIONS (11)
  - Adrenocortical insufficiency acute [Not Recovered/Not Resolved]
  - Lethargy [Not Recovered/Not Resolved]
  - Hypophagia [Not Recovered/Not Resolved]
  - Urine output decreased [Not Recovered/Not Resolved]
  - Blood sodium decreased [Not Recovered/Not Resolved]
  - Frequent bowel movements [Not Recovered/Not Resolved]
  - Hypoglycaemia [Not Recovered/Not Resolved]
  - Hypotension [Not Recovered/Not Resolved]
  - Blood cortisol increased [Not Recovered/Not Resolved]
  - Rash [Not Recovered/Not Resolved]
  - Pruritus [Not Recovered/Not Resolved]
